FAERS Safety Report 8897907 (Version 1)
Quarter: 2012Q4

REPORT INFORMATION
  Report Type: 
  Country: US (occurrence: US)
  Receive Date: 20121108
  Receipt Date: 20121108
  Transmission Date: 20130627
  Serious: No
  Sender: FDA-Public Use
  Company Number: US-AMGEN-USASP2012032964

PATIENT
  Age: 61 Year

DRUGS (7)
  1. ENBREL [Suspect]
     Indication: PRODUCT USED FOR UNKNOWN INDICATION
     Dosage: 50 mg, 2 times/wk
     Route: 058
  2. ZYRTEC [Concomitant]
     Dosage: 5 mg, UNK
  3. NEURONTIN [Concomitant]
     Dosage: 100 mg, UNK
  4. BENADRYL                           /00000402/ [Concomitant]
     Dosage: 25 mg, UNK
  5. VALIUM                             /00017001/ [Concomitant]
     Dosage: 10 mg, UNK
  6. HYDROCODONE [Concomitant]
  7. PROAIR HFA [Concomitant]

REACTIONS (1)
  - Pain in extremity [Unknown]
